FAERS Safety Report 6264555-7 (Version None)
Quarter: 2009Q3

REPORT INFORMATION
  Report Type: 
  Country: None (occurrence: None)
  Receive Date: 20090710
  Receipt Date: 20090708
  Transmission Date: 20100115
  Serious: Yes (Other)
  Sender: FDA-Public Use
  Company Number: DE-ABBOTT-09P-062-0584039-00

PATIENT
  Sex: Female

DRUGS (3)
  1. HUMIRA [Suspect]
     Indication: PROSTATIC SPECIFIC ANTIGEN
     Route: 058
     Dates: start: 20080410
  2. CYCLOSPORINE [Concomitant]
     Indication: PROSTATIC SPECIFIC ANTIGEN
  3. CORTISONE [Concomitant]
     Indication: PROSTATIC SPECIFIC ANTIGEN

REACTIONS (1)
  - RENAL FAILURE [None]
